FAERS Safety Report 16508875 (Version 1)
Quarter: 2019Q3

REPORT INFORMATION
  Report Type: Spontaneous
  Country: US (occurrence: US)
  Receive Date: 20190701
  Receipt Date: 20190701
  Transmission Date: 20191004
  Serious: No
  Sender: FDA-Public Use
  Company Number: None

PATIENT
  Age: 33 Year
  Sex: Male
  Weight: 99.4 kg

DRUGS (1)
  1. ANAVIP [Suspect]
     Active Substance: PIT VIPER (CROTALINAE) IMMUNE GLOBULIN ANTIVENIN (EQUINE)
     Indication: SNAKE BITE
     Route: 042
     Dates: start: 20190630, end: 20190630

REACTIONS (5)
  - Infusion related reaction [None]
  - Flushing [None]
  - Pruritus [None]
  - Paraesthesia oral [None]
  - Urticaria [None]

NARRATIVE: CASE EVENT DATE: 20190630
